FAERS Safety Report 4832139-0 (Version None)
Quarter: 2005Q4

REPORT INFORMATION
  Report Type: 
  Country: None (occurrence: None)
  Receive Date: 20051118
  Receipt Date: 20050707
  Transmission Date: 20060501
  Serious: Yes (Disabling, Other)
  Sender: FDA-Public Use
  Company Number: US-MERCK-0507USA01263

PATIENT
  Age: 39 Year
  Sex: Female
  Weight: 75 kg

DRUGS (4)
  1. VIOXX [Suspect]
     Indication: BACK PAIN
     Route: 048
     Dates: start: 20010925, end: 20011012
  2. VICODIN [Concomitant]
     Route: 065
  3. FLEXERIL [Concomitant]
     Route: 065
  4. MOTRIN [Concomitant]
     Route: 065
     Dates: start: 20010625

REACTIONS (4)
  - ADVERSE EVENT [None]
  - BLINDNESS UNILATERAL [None]
  - CEREBROVASCULAR ACCIDENT [None]
  - MITRAL VALVE PROLAPSE [None]
